FAERS Safety Report 23554532 (Version 2)
Quarter: 2024Q1

REPORT INFORMATION
  Report Type: Spontaneous
  Country: RS (occurrence: RS)
  Receive Date: 20240222
  Receipt Date: 20240226
  Transmission Date: 20240410
  Serious: Yes (Other)
  Sender: FDA-Public Use
  Company Number: RS-009507513-2402SRB006496

PATIENT
  Age: 6 Decade
  Sex: Male

DRUGS (1)
  1. PEMBROLIZUMAB [Suspect]
     Active Substance: PEMBROLIZUMAB
     Dates: start: 20180315

REACTIONS (5)
  - Tumour pseudoprogression [Unknown]
  - Skin depigmentation [Unknown]
  - Vitiligo [Unknown]
  - Blood lactate dehydrogenase abnormal [Unknown]
  - Therapy partial responder [Unknown]

NARRATIVE: CASE EVENT DATE: 20180101
